FAERS Safety Report 6300562-3 (Version None)
Quarter: 2009Q3

REPORT INFORMATION
  Report Type: 
  Country: None (occurrence: None)
  Receive Date: 20090806
  Receipt Date: 20090313
  Transmission Date: 20100115
  Serious: No
  Sender: FDA-Public Use
  Company Number: US-ABBOTT-09P-163-0562859-00

PATIENT
  Sex: Female
  Weight: 56.75 kg

DRUGS (1)
  1. DEPAKOTE ER [Suspect]
     Indication: MIGRAINE
     Dates: start: 20090115

REACTIONS (2)
  - DEAFNESS [None]
  - WEIGHT INCREASED [None]
